FAERS Safety Report 20252801 (Version 1)
Quarter: 2021Q4

REPORT INFORMATION
  Report Type: Spontaneous
  Country: US (occurrence: US)
  Receive Date: 20211229
  Receipt Date: 20211229
  Transmission Date: 20220304
  Serious: Yes (Other)
  Sender: FDA-Public Use
  Company Number: US-PURDUE-USA-2020-0225397

PATIENT
  Sex: Female

DRUGS (6)
  1. OXYCONTIN [Suspect]
     Active Substance: OXYCODONE HYDROCHLORIDE
     Indication: Cluster headache
     Dosage: UNK
     Route: 048
     Dates: start: 2010
  2. FENTANYL CITRATE [Suspect]
     Active Substance: FENTANYL CITRATE
     Indication: Cluster headache
     Dosage: UNK
     Route: 048
     Dates: start: 2010
  3. OXYCODONE HYDROCHLORIDE [Suspect]
     Active Substance: OXYCODONE HYDROCHLORIDE
     Indication: Cluster headache
     Dosage: UNKNOWN
     Route: 048
     Dates: start: 2010
  4. OXYCODONE HYDROCHLORIDE [Suspect]
     Active Substance: OXYCODONE HYDROCHLORIDE
     Indication: Cluster headache
     Dosage: UNK
     Route: 048
     Dates: start: 2010
  5. ACETAMINOPHEN\OXYCODONE HYDROCHLORIDE [Suspect]
     Active Substance: ACETAMINOPHEN\OXYCODONE HYDROCHLORIDE
     Indication: Cluster headache
     Dosage: UNKNOWN
     Route: 048
     Dates: start: 2010
  6. MORPHINE SULFATE [Suspect]
     Active Substance: MORPHINE SULFATE
     Indication: Cluster headache
     Dosage: UNKNOWN
     Route: 048
     Dates: start: 2010

REACTIONS (1)
  - Drug dependence [Unknown]
